FAERS Safety Report 6051587-7 (Version None)
Quarter: 2009Q1

REPORT INFORMATION
  Report Type: 
  Country: None (occurrence: None)
  Receive Date: 20090126
  Receipt Date: 20090120
  Transmission Date: 20090719
  Serious: Yes (Other)
  Sender: FDA-Public Use
  Company Number: GB-MERCK-0901GBR00062

PATIENT
  Age: 89 Year
  Sex: Female
  Weight: 54 kg

DRUGS (17)
  1. FOSAMAX [Suspect]
     Route: 048
  2. AMOXICILLIN [Concomitant]
     Route: 048
  3. BENDROFLUMETHIAZIDE [Concomitant]
     Route: 048
  4. BETAMETHASONE VALERATE [Concomitant]
     Route: 061
  5. CALCIUM CARBONATE [Concomitant]
     Route: 048
  6. POTASSIUM BICARBONATE AND SODIUM ALGINATE [Concomitant]
     Route: 048
  7. HYDROXYZINE HYDROCHLORIDE [Concomitant]
     Route: 048
  8. LORATADINE [Concomitant]
     Route: 048
  9. PREDNISOLONE [Concomitant]
     Route: 048
  10. ALBUTEROL [Concomitant]
  11. THEOPHYLLINE [Concomitant]
     Route: 048
  12. BUDESONIDE AND FORMOTEROL FUMARATE [Concomitant]
  13. TIOTROPIUM BROMIDE [Concomitant]
  14. TRAMADOL HYDROCHLORIDE [Concomitant]
     Route: 048
  15. ALBUTEROL SULFATE [Concomitant]
  16. PROTEIN (UNSPECIFIED) [Concomitant]
     Route: 065
  17. PROTEIN (UNSPECIFIED) [Concomitant]
     Route: 065

REACTIONS (2)
  - LIP SWELLING [None]
  - PAIN [None]
